FAERS Safety Report 7416070-2 (Version None)
Quarter: 2011Q2

REPORT INFORMATION
  Report Type: 
  Country: None (occurrence: None)
  Receive Date: 20110414
  Receipt Date: 20110411
  Transmission Date: 20111010
  Serious: Yes (Hospitalization)
  Sender: FDA-Public Use
  Company Number: BR-US-EMD SERONO, INC.-7053389

PATIENT
  Sex: Female

DRUGS (7)
  1. PREDNISONE [Concomitant]
  2. AMOXYCILLIN [Concomitant]
  3. AMPLICTIL [Concomitant]
     Dosage: 4 DROPS
  4. PAROXETINE [Concomitant]
  5. REBIF [Suspect]
     Indication: RELAPSING-REMITTING MULTIPLE SCLEROSIS
     Dates: start: 20100101
  6. DALMADORM [Concomitant]
  7. MORPHINE [Concomitant]

REACTIONS (7)
  - URINARY INCONTINENCE [None]
  - PAIN [None]
  - MYALGIA [None]
  - HAEMATURIA [None]
  - DYSURIA [None]
  - RENAL FAILURE [None]
  - FATIGUE [None]
